FAERS Safety Report 22045607 (Version 1)
Quarter: 2023Q1

REPORT INFORMATION
  Report Type: Spontaneous
  Country: ES (occurrence: ES)
  Receive Date: 20230228
  Receipt Date: 20230228
  Transmission Date: 20230417
  Serious: Yes (Other)
  Sender: FDA-Public Use
  Company Number: None

PATIENT
  Age: 70 Year
  Sex: Female

DRUGS (3)
  1. PACLITAXEL [Suspect]
     Active Substance: PACLITAXEL
     Indication: Breast cancer
     Dosage: 1 VIAL OF 50 ML?CONCENTRATE FOR SOLUTION FOR INFUSION?140 MG
     Route: 042
     Dates: start: 20230207, end: 20230207
  2. PERTUZUMAB [Concomitant]
     Active Substance: PERTUZUMAB
     Indication: Breast cancer
     Dosage: 840 MG
     Route: 042
     Dates: start: 20230207, end: 20230207
  3. TRASTUZUMAB(1168A) [Concomitant]
     Indication: Breast cancer
     Dosage: 560 MG
     Route: 042
     Dates: start: 20230207, end: 20230207

REACTIONS (1)
  - Anaphylactic reaction [Recovered/Resolved]

NARRATIVE: CASE EVENT DATE: 20230207
